FAERS Safety Report 24887753 (Version 2)
Quarter: 2025Q1

REPORT INFORMATION
  Report Type: Report from Study
  Country: ZA (occurrence: ZA)
  Receive Date: 20250127
  Receipt Date: 20250207
  Transmission Date: 20250409
  Serious: Yes (Congenital Anomaly, Other)
  Sender: HETERO
  Company Number: ZA-HETERO-HET2025ZA00254

PATIENT
  Sex: Male
  Weight: 2.9 kg

DRUGS (2)
  1. DOLUTEGRAVIR\LAMIVUDINE\TENOFOVIR DISOPROXIL FUMARATE [Suspect]
     Active Substance: DOLUTEGRAVIR\LAMIVUDINE\TENOFOVIR DISOPROXIL FUMARATE
     Indication: Product used for unknown indication
     Route: 064
  2. DOLUTEGRAVIR [Suspect]
     Active Substance: DOLUTEGRAVIR
     Indication: Product used for unknown indication
     Route: 064
     Dates: start: 20240229

REACTIONS (2)
  - Congenital umbilical hernia [Unknown]
  - Foetal exposure during pregnancy [Unknown]
